FAERS Safety Report 13906665 (Version 14)
Quarter: 2019Q2

REPORT INFORMATION
  Report Type: Spontaneous
  Country: US (occurrence: US)
  Receive Date: 20170825
  Receipt Date: 20190426
  Transmission Date: 20190711
  Serious: Yes (Death, Hospitalization)
  Sender: FDA-Public Use
  Company Number: US-ACTELION-A-US2017-158439

PATIENT
  Age: 70 Year
  Sex: Male

DRUGS (4)
  1. AURYXIA [Concomitant]
     Active Substance: TETRAFERRIC TRICITRATE DECAHYDRATE
  2. OPSUMIT [Suspect]
     Active Substance: MACITENTAN
     Indication: PULMONARY ARTERIAL HYPERTENSION
     Dosage: 10 MG, QD
     Route: 048
     Dates: start: 20170717
  3. SILDENAFIL. [Concomitant]
     Active Substance: SILDENAFIL
  4. FUROSEMIDE. [Concomitant]
     Active Substance: FUROSEMIDE

REACTIONS (20)
  - Blood iron decreased [Unknown]
  - Oesophageal infection [Not Recovered/Not Resolved]
  - Atrial fibrillation [Unknown]
  - Product dose omission [Not Recovered/Not Resolved]
  - Nausea [Unknown]
  - Haemoglobin decreased [Unknown]
  - Dyskinesia [Unknown]
  - Ventricular tachycardia [Recovering/Resolving]
  - Vomiting [Unknown]
  - Prostatic disorder [Unknown]
  - Cardiac failure congestive [Unknown]
  - Anaemia [Unknown]
  - Diarrhoea [Unknown]
  - Death [Fatal]
  - Pain in extremity [Unknown]
  - Peripheral swelling [Not Recovered/Not Resolved]
  - Transfusion [Unknown]
  - Hospitalisation [Unknown]
  - Fluid retention [Unknown]
  - Dialysis [Unknown]

NARRATIVE: CASE EVENT DATE: 201708
